FAERS Safety Report 7322185-X (Version None)
Quarter: 2011Q1

REPORT INFORMATION
  Report Type: 
  Country: None (occurrence: None)
  Receive Date: 20110228
  Receipt Date: 20110223
  Transmission Date: 20110831
  Serious: Yes (Other)
  Sender: FDA-Public Use
  Company Number: AT-MERCK-1102AUT00006

PATIENT

DRUGS (1)
  1. VYTORIN [Suspect]
     Indication: DYSLIPIDAEMIA
     Route: 048
     Dates: start: 20090101

REACTIONS (1)
  - BRONCHIAL NEOPLASM [None]
